FAERS Safety Report 6134161-3 (Version None)
Quarter: 2009Q1

REPORT INFORMATION
  Report Type: 
  Country: None (occurrence: None)
  Receive Date: 20090325
  Receipt Date: 20090317
  Transmission Date: 20090719
  Serious: Yes (Death, Hospitalization, Other)
  Sender: FDA-Public Use
  Company Number: 2009US000632

PATIENT
  Age: 60 Year
  Sex: Male
  Weight: 68 kg

DRUGS (3)
  1. PROGRAF [Suspect]
     Indication: RENAL TRANSPLANT
     Dosage: 0.5 MG, BID, ORAL ; 1 MG, BID, ORAL
     Route: 048
     Dates: end: 20080214
  2. PROGRAF [Suspect]
     Indication: RENAL TRANSPLANT
     Dosage: 0.5 MG, BID, ORAL ; 1 MG, BID, ORAL
     Route: 048
     Dates: start: 20080226
  3. CELLCEPT [Concomitant]

REACTIONS (11)
  - BRADYCARDIA [None]
  - HAEMODIALYSIS [None]
  - HEPATIC FAILURE [None]
  - HEPATIC VEIN STENOSIS [None]
  - ILEUS [None]
  - PERITONITIS BACTERIAL [None]
  - PSEUDOMONAS INFECTION [None]
  - RENAL FAILURE ACUTE [None]
  - RESPIRATORY FAILURE [None]
  - SEPSIS [None]
  - TRANSPLANT FAILURE [None]
